FAERS Safety Report 7080043-2 (Version None)
Quarter: 2010Q4

REPORT INFORMATION
  Report Type: 
  Country: None (occurrence: None)
  Receive Date: 20101102
  Receipt Date: 20100831
  Transmission Date: 20110411
  Serious: No
  Sender: FDA-Public Use
  Company Number: US-ABBOTT-10P-163-0668651-00

PATIENT
  Sex: Female

DRUGS (2)
  1. CLARITHROMYCIN TABLETS [Suspect]
     Indication: PRODUCT USED FOR UNKNOWN INDICATION
  2. CLARITHROMYCIN ER ( UNKNOWN MANUFACTURE) [Suspect]
     Indication: LYME DISEASE

REACTIONS (1)
  - DRUG INEFFECTIVE [None]
